FAERS Safety Report 8174898-8 (Version None)
Quarter: 2012Q1

REPORT INFORMATION
  Report Type: 
  Country: None (occurrence: None)
  Receive Date: 20120229
  Receipt Date: 20110607
  Transmission Date: 20120608
  Serious: No
  Sender: FDA-Public Use
  Company Number: US-GLAXOSMITHKLINE-A0931924A

PATIENT
  Sex: Female

DRUGS (1)
  1. VALACYCLOVIR HYDROCHLORIDE [Suspect]
     Indication: ORAL HERPES
     Route: 065
     Dates: start: 20110101

REACTIONS (2)
  - DRUG ADMINISTRATION ERROR [None]
  - THERAPEUTIC RESPONSE DECREASED [None]
